FAERS Safety Report 20032127 (Version 1)
Quarter: 2021Q4

REPORT INFORMATION
  Report Type: Spontaneous
  Country: US (occurrence: US)
  Receive Date: 20211103
  Receipt Date: 20211103
  Transmission Date: 20220303
  Serious: No
  Sender: FDA-Public Use
  Company Number: US-SANOFI-00832908

PATIENT
  Age: 74 Year
  Sex: Male

DRUGS (1)
  1. ALLEGRA ALLERGY [Suspect]
     Active Substance: FEXOFENADINE HYDROCHLORIDE
     Indication: Transient acantholytic dermatosis
     Dosage: 180 MG, QD
     Route: 048
     Dates: start: 20211024

REACTIONS (4)
  - Pollakiuria [Unknown]
  - Swelling [Unknown]
  - Pruritus [Unknown]
  - Insomnia [Unknown]
